FAERS Safety Report 9397266 (Version 1)
Quarter: 2013Q3

REPORT INFORMATION
  Report Type: Spontaneous
  Country: US (occurrence: US)
  Receive Date: 20130712
  Receipt Date: 20130712
  Transmission Date: 20140515
  Serious: No
  Sender: FDA-Public Use
  Company Number: US-BAYER-2013-084603

PATIENT
  Sex: 0

DRUGS (4)
  1. ALEVE CAPLET [Suspect]
     Indication: HEADACHE
  2. MOTRIN [Concomitant]
  3. TYLENOL [PARACETAMOL] [Concomitant]
  4. EXCEDRIN [CAFFEINE,PARACETAMOL] [Concomitant]

REACTIONS (2)
  - Headache [None]
  - Drug ineffective [None]
